FAERS Safety Report 21766425 (Version 1)
Quarter: 2022Q4

REPORT INFORMATION
  Report Type: Spontaneous
  Country: US (occurrence: US)
  Receive Date: 20221222
  Receipt Date: 20221222
  Transmission Date: 20230113
  Serious: No
  Sender: FDA-Public Use
  Company Number: US-PFIZER INC-202201378098

PATIENT
  Age: 66 Year
  Sex: Female

DRUGS (2)
  1. PAXLOVID [Suspect]
     Active Substance: NIRMATRELVIR\RITONAVIR
     Indication: COVID-19 treatment
     Dosage: UNK
     Dates: start: 20221206, end: 20221210
  2. FOSAMAX [Concomitant]
     Active Substance: ALENDRONATE SODIUM
     Dosage: UNK

REACTIONS (2)
  - COVID-19 [Unknown]
  - Disease recurrence [Unknown]

NARRATIVE: CASE EVENT DATE: 20221215
